FAERS Safety Report 6679952-5 (Version None)
Quarter: 2010Q2

REPORT INFORMATION
  Report Type: 
  Country: None (occurrence: None)
  Receive Date: 20100413
  Receipt Date: 20100330
  Transmission Date: 20101027
  Serious: Yes (Other)
  Sender: FDA-Public Use
  Company Number: US-ELI_LILLY_AND_COMPANY-US201004001387

PATIENT
  Sex: Female

DRUGS (5)
  1. EVISTA [Suspect]
     Indication: OSTEOPOROSIS
     Dosage: 60 MG, DAILY (1/D)
     Dates: start: 19900101
  2. METFORMIN HCL [Concomitant]
     Dosage: 850 MG, 2/D
  3. LEVOTHYROXINE SODIUM [Concomitant]
     Dosage: 0.088 MG, DAILY (1/D)
  4. SIMVASTATIN [Concomitant]
     Dosage: 20 MG, DAILY (1/D)
  5. DIOVAN HCT [Concomitant]
     Dosage: UNK D/F, DAILY (1/D)

REACTIONS (5)
  - ADRENAL CYST [None]
  - BREAST PAIN [None]
  - LIVER DISORDER [None]
  - MUSCLE SPASMS [None]
  - RENAL CANCER [None]
